FAERS Safety Report 7730202-8 (Version None)
Quarter: 2011Q3

REPORT INFORMATION
  Report Type: 
  Country: None (occurrence: None)
  Receive Date: 20110906
  Receipt Date: 20110901
  Transmission Date: 20111222
  Serious: Yes (Other)
  Sender: FDA-Public Use
  Company Number: PHHY2011JP78411

PATIENT

DRUGS (2)
  1. SANDOSTATIN [Suspect]
     Dosage: 50 UG, BID
     Route: 058
  2. SANDOSTATIN LAR [Suspect]
     Dosage: 20 MG, DAILY
     Route: 030
     Dates: start: 20110831

REACTIONS (1)
  - CYANOSIS [None]
